FAERS Safety Report 6652392-0 (Version None)
Quarter: 2010Q1

REPORT INFORMATION
  Report Type: 
  Country: None (occurrence: None)
  Receive Date: 20100325
  Receipt Date: 20100315
  Transmission Date: 20100710
  Serious: Yes (Hospitalization, Other)
  Sender: FDA-Public Use
  Company Number: US-ABBOTT-10P-163-0633055-00

PATIENT
  Sex: Female
  Weight: 59.02 kg

DRUGS (12)
  1. HUMIRA [Suspect]
     Indication: RHEUMATOID ARTHRITIS
     Dates: start: 20080315, end: 20080901
  2. HUMIRA [Suspect]
     Dates: start: 20080901, end: 20081201
  3. HUMIRA [Suspect]
     Dates: start: 20100101
  4. NICORETTE [Concomitant]
     Indication: EX-TOBACCO USER
     Dosage: UNKNOWN
     Route: 062
     Dates: start: 20081201
  5. ALBUTEROL [Concomitant]
     Indication: CHRONIC OBSTRUCTIVE PULMONARY DISEASE
     Route: 055
  6. PULMACORT FLEX [Concomitant]
     Indication: CHRONIC OBSTRUCTIVE PULMONARY DISEASE
  7. SPIRIVA [Concomitant]
     Indication: CHRONIC OBSTRUCTIVE PULMONARY DISEASE
  8. PREMARIN [Concomitant]
     Indication: HYSTERECTOMY
     Route: 048
     Dates: start: 19980101
  9. SPIRONOLACTONE [Concomitant]
     Indication: CHRONIC OBSTRUCTIVE PULMONARY DISEASE
     Dates: start: 20060101
  10. MULTI-VITAMINS [Concomitant]
     Indication: VITAMIN SUPPLEMENTATION
  11. VITAMIN D KIU [Concomitant]
     Indication: CALCINOSIS
     Dates: start: 19970101
  12. METHADONE [Concomitant]
     Indication: ARTHRALGIA
     Dates: start: 20080101

REACTIONS (18)
  - BONE DISORDER [None]
  - CHEST DISCOMFORT [None]
  - CONTUSION [None]
  - DRUG DEPENDENCE [None]
  - DRUG EFFECT DECREASED [None]
  - GASTRECTOMY [None]
  - GASTRIC ULCER [None]
  - HAEMORRHAGIC DIATHESIS [None]
  - HELICOBACTER INFECTION [None]
  - IMMUNODEFICIENCY [None]
  - INCREASED TENDENCY TO BRUISE [None]
  - LYMPHADENOPATHY [None]
  - MASS [None]
  - NECK PAIN [None]
  - VASODILATATION [None]
  - VISION BLURRED [None]
  - VISUAL ACUITY REDUCED [None]
  - WHITE BLOOD CELL COUNT DECREASED [None]
